FAERS Safety Report 23936894 (Version 6)
Quarter: 2024Q4

REPORT INFORMATION
  Report Type: Spontaneous
  Country: GB (occurrence: GB)
  Receive Date: 20240604
  Receipt Date: 20241216
  Transmission Date: 20250114
  Serious: Yes (Hospitalization, Other)
  Sender: MYLAN
  Company Number: GB-MYLANLABS-2024M1049346

PATIENT
  Sex: Female

DRUGS (6)
  1. CLOZARIL [Suspect]
     Active Substance: CLOZAPINE
     Indication: Schizophrenia
     Dosage: UNK
     Route: 048
     Dates: start: 20030320
  2. CLOZARIL [Suspect]
     Active Substance: CLOZAPINE
     Dosage: 450 MILLIGRAM
     Route: 048
     Dates: start: 20240607
  3. CLOZARIL [Suspect]
     Active Substance: CLOZAPINE
     Dosage: 12.50 MILLIGRAM
     Route: 048
  4. CLOZARIL [Suspect]
     Active Substance: CLOZAPINE
     Dosage: 25 MILLIGRAM
     Route: 048
  5. CLOZARIL [Suspect]
     Active Substance: CLOZAPINE
     Dosage: UNK
     Route: 048
     Dates: start: 20241021
  6. PALIPERIDONE [Concomitant]
     Active Substance: PALIPERIDONE
     Dosage: UNK (LOADING DOSE)
     Route: 065

REACTIONS (4)
  - Schizophrenia [Unknown]
  - Cardiac failure [Unknown]
  - Diabetes mellitus [Unknown]
  - Treatment noncompliance [Unknown]
